FAERS Safety Report 15298317 (Version 2)
Quarter: 2018Q3

REPORT INFORMATION
  Report Type: Report from Study
  Country: US (occurrence: US)
  Receive Date: 20180820
  Receipt Date: 20180913
  Transmission Date: 20181010
  Serious: Yes (Hospitalization)
  Sender: FDA-Public Use
  Company Number: US-ACTELION-A-US2018-173947

PATIENT
  Age: 45 Year
  Sex: Male
  Weight: 84.81 kg

DRUGS (4)
  1. VELETRI [Suspect]
     Active Substance: EPOPROSTENOL
     Dosage: UNK
     Route: 042
  2. SILDENAFIL CITRATE. [Concomitant]
     Active Substance: SILDENAFIL CITRATE
  3. TRACLEER [Suspect]
     Active Substance: BOSENTAN
     Indication: PULMONARY HYPERTENSION
     Dosage: 125 MG, BID
     Route: 048
  4. VELETRI [Suspect]
     Active Substance: EPOPROSTENOL
     Indication: PULMONARY HYPERTENSION
     Dosage: 63 NG/KG, PER MIN
     Route: 042

REACTIONS (13)
  - Night sweats [Unknown]
  - Abdominal discomfort [Recovered/Resolved]
  - Device damage [Recovered/Resolved]
  - Catheter site inflammation [Unknown]
  - Insomnia [Unknown]
  - Device alarm issue [Recovered/Resolved]
  - Nausea [Recovered/Resolved]
  - Dyspnoea [Recovered/Resolved]
  - Catheter management [Recovered/Resolved]
  - Emergency care [Unknown]
  - Neck pain [Unknown]
  - Pallor [Recovered/Resolved]
  - Malaise [Recovered/Resolved]

NARRATIVE: CASE EVENT DATE: 20180729
